FAERS Safety Report 4994222-9 (Version None)
Quarter: 2006Q2

REPORT INFORMATION
  Report Type: 
  Country: None (occurrence: None)
  Receive Date: 20060503
  Receipt Date: 20060425
  Transmission Date: 20061013
  Serious: Yes (Life-Threatening)
  Sender: FDA-Public Use
  Company Number: 2006PV012654

PATIENT
  Age: 53 Year
  Sex: Female

DRUGS (11)
  1. BYETTA [Suspect]
     Indication: DIABETES MELLITUS NON-INSULIN-DEPENDENT
     Dosage: SEE IMAGE
     Route: 058
     Dates: start: 20060223, end: 20060301
  2. BYETTA [Suspect]
     Indication: DIABETES MELLITUS NON-INSULIN-DEPENDENT
     Dosage: SEE IMAGE
     Route: 058
     Dates: start: 20060301, end: 20060407
  3. BYETTA [Suspect]
     Indication: DIABETES MELLITUS NON-INSULIN-DEPENDENT
     Dosage: SEE IMAGE
     Route: 058
     Dates: start: 20060417, end: 20060417
  4. ASPIRIN [Concomitant]
  5. ALTACE [Concomitant]
  6. LANTUS [Concomitant]
  7. HUMALOG [Concomitant]
  8. VITORIN [Concomitant]
  9. COSPOT [Concomitant]
  10. ALPHAGAN [Concomitant]
  11. LUMAGAN [Concomitant]

REACTIONS (8)
  - ANAPHYLACTIC REACTION [None]
  - FAECAL INCONTINENCE [None]
  - HYPOTENSION [None]
  - INJECTION SITE URTICARIA [None]
  - NAUSEA [None]
  - RASH GENERALISED [None]
  - VOMITING [None]
  - WEIGHT DECREASED [None]
